FAERS Safety Report 13262229 (Version 1)
Quarter: 2017Q1

REPORT INFORMATION
  Report Type: Report from Study
  Country: BR (occurrence: BR)
  Receive Date: 20170222
  Receipt Date: 20170222
  Transmission Date: 20170428
  Serious: Yes (Other)
  Sender: FDA-Public Use
  Company Number: PHHY2017BR023861

PATIENT
  Sex: Female
  Weight: 57 kg

DRUGS (1)
  1. OMNITROPE [Suspect]
     Active Substance: SOMATROPIN
     Indication: WEIGHT GAIN POOR
     Dosage: 0.5 MG, UNK
     Route: 058
     Dates: start: 201608, end: 201609

REACTIONS (2)
  - Pituitary tumour benign [Unknown]
  - Blood prolactin increased [Unknown]
